FAERS Safety Report 7435643-4 (Version None)
Quarter: 2011Q2

REPORT INFORMATION
  Report Type: 
  Country: None (occurrence: None)
  Receive Date: 20110425
  Receipt Date: 20110415
  Transmission Date: 20111010
  Serious: Yes (Hospitalization)
  Sender: FDA-Public Use
  Company Number: US-ASTRAZENECA-2011SE22046

PATIENT
  Age: 42 Year

DRUGS (2)
  1. SEROQUEL XR [Suspect]
     Route: 048
  2. MANY DIFFERENT MEDICATIONS [Concomitant]

REACTIONS (2)
  - LOSS OF EMPLOYMENT [None]
  - ROAD TRAFFIC ACCIDENT [None]
